FAERS Safety Report 20618340 (Version 2)
Quarter: 2022Q2

REPORT INFORMATION
  Report Type: Report from Study
  Country: US (occurrence: US)
  Receive Date: 20220321
  Receipt Date: 20220408
  Transmission Date: 20220720
  Serious: Yes (Other)
  Sender: FDA-Public Use
  Company Number: US-INCYTE CORPORATION-2022IN001325

PATIENT

DRUGS (1)
  1. JAKAFI [Suspect]
     Active Substance: RUXOLITINIB
     Indication: Myelofibrosis
     Dosage: 15 MILLIGRAM, BID (WITH OR WITH OUT FOOD, AVOID GRAPE FRUIT PRODUCTS)
     Route: 048
     Dates: start: 20200909

REACTIONS (2)
  - Cardiac failure congestive [Unknown]
  - Malaise [Unknown]
